FAERS Safety Report 14086754 (Version 2)
Quarter: 2017Q4

REPORT INFORMATION
  Report Type: Spontaneous
  Country: HR (occurrence: HR)
  Receive Date: 20171013
  Receipt Date: 20171023
  Transmission Date: 20180321
  Serious: Yes (Hospitalization, Disabling)
  Sender: FDA-Public Use
  Company Number: HR-ALLERGAN-1757399US

PATIENT
  Age: 49 Year
  Sex: Male

DRUGS (8)
  1. BOTOX [Suspect]
     Active Substance: ONABOTULINUMTOXINA
     Dosage: 15 UNITS, SINGLE
     Dates: start: 20160421, end: 20160421
  2. BOTOX [Suspect]
     Active Substance: ONABOTULINUMTOXINA
     Dosage: 50 UNITS, SINGLE
     Route: 030
     Dates: start: 20160421, end: 20160421
  3. BOTOX [Suspect]
     Active Substance: ONABOTULINUMTOXINA
     Dosage: 15 UNITS, SINGLE
     Route: 030
     Dates: start: 20160421, end: 20160421
  4. BOTOX [Suspect]
     Active Substance: ONABOTULINUMTOXINA
     Dosage: 15 UNITS, SINGLE
     Route: 030
     Dates: start: 20160421, end: 20160421
  5. BOTOX [Suspect]
     Active Substance: ONABOTULINUMTOXINA
     Dosage: 20 UNITS, SINGLE
     Route: 030
     Dates: start: 20160421, end: 20160421
  6. BOTOX [Suspect]
     Active Substance: ONABOTULINUMTOXINA
     Dosage: 35 UNITS, SINGLE
     Route: 030
     Dates: start: 20160421, end: 20160421
  7. BOTOX [Suspect]
     Active Substance: ONABOTULINUMTOXINA
     Indication: HEMIPARESIS
     Dosage: 20 UNITS, SINGLE
     Route: 030
     Dates: start: 20160421, end: 20160421
  8. BOTOX [Suspect]
     Active Substance: ONABOTULINUMTOXINA
     Dosage: 30 UNITS, SINGLE
     Route: 030
     Dates: start: 20160421, end: 20160421

REACTIONS (3)
  - Fall [Unknown]
  - Muscular weakness [Unknown]
  - Femur fracture [Unknown]

NARRATIVE: CASE EVENT DATE: 20160525
